FAERS Safety Report 9835831 (Version 2)
Quarter: 2014Q1

REPORT INFORMATION
  Report Type: Spontaneous
  Country: US (occurrence: US)
  Receive Date: 20140122
  Receipt Date: 20140306
  Transmission Date: 20141002
  Serious: Yes (Life-Threatening, Hospitalization, Other)
  Sender: FDA-Public Use
  Company Number: PHEH2014US001416

PATIENT
  Age: 50 Year
  Sex: Male

DRUGS (15)
  1. GILENYA [Suspect]
     Indication: MULTIPLE SCLEROSIS
     Dosage: UNK
     Route: 048
     Dates: start: 2011
  2. BACLOFEN [Concomitant]
     Route: 048
  3. PRAMIPEXOLE [Concomitant]
     Dosage: UNK
     Route: 048
  4. AMANTADINE [Concomitant]
     Route: 048
  5. CARVEDILOL [Concomitant]
     Route: 048
  6. LASIX [Concomitant]
     Route: 048
  7. LIPITOR [Concomitant]
     Route: 048
  8. LISINOPRIL [Concomitant]
     Route: 048
  9. PROZAC [Concomitant]
     Route: 048
  10. ASA [Concomitant]
     Route: 048
  11. KEPPRA [Concomitant]
     Route: 048
  12. OMEPRAZOLE [Concomitant]
     Route: 048
  13. GLIPIZIDE [Concomitant]
     Route: 048
  14. KCL [Concomitant]
     Dosage: UNK
     Route: 048
  15. REGLAN [Concomitant]
     Route: 048

REACTIONS (2)
  - Myocardial infarction [Recovered/Resolved]
  - Cardiac failure congestive [Unknown]
